FAERS Safety Report 16611715 (Version 1)
Quarter: 2019Q3

REPORT INFORMATION
  Report Type: Spontaneous
  Country: US (occurrence: US)
  Receive Date: 20190722
  Receipt Date: 20190722
  Transmission Date: 20191004
  Serious: No
  Sender: FDA-Public Use
  Company Number: US-ALLERGAN-1915187US

PATIENT
  Sex: Female

DRUGS (1)
  1. TRIPTORELIN PAMOATE - BP [Suspect]
     Active Substance: TRIPTORELIN PAMOATE
     Indication: PRECOCIOUS PUBERTY
     Dosage: 22.5 MG, EVERY 6 MONTHS
     Route: 030
     Dates: start: 20190306, end: 20190306

REACTIONS (2)
  - Needle issue [Unknown]
  - Injection related reaction [Unknown]

NARRATIVE: CASE EVENT DATE: 2019
